FAERS Safety Report 4808378-1 (Version None)
Quarter: 2005Q4

REPORT INFORMATION
  Report Type: 
  Country: None (occurrence: None)
  Receive Date: 20051021
  Receipt Date: 20020528
  Transmission Date: 20060501
  Serious: No
  Sender: FDA-Public Use
  Company Number: EWC020531121

PATIENT
  Age: 63 Year
  Sex: Female
  Weight: 80 kg

DRUGS (4)
  1. OLANZAPINE [Suspect]
     Indication: BIPOLAR DISORDER
     Dosage: 15 MG/DAY
     Dates: start: 20010430
  2. VALPROATE SODIUM [Concomitant]
  3. ZINC SPANSULE CAPSULES (ZINC SULFATE) [Concomitant]
  4. OXYBUTYNIN [Concomitant]

REACTIONS (1)
  - NEUTROPENIA [None]
